FAERS Safety Report 8019459 (Version 3)
Quarter: 2013Q2

REPORT INFORMATION
  Report Type: Spontaneous
  Country: FR (occurrence: FR)
  Receive Date: 20110704
  Receipt Date: 20130506
  Transmission Date: 20140414
  Serious: Yes (Hospitalization)
  Sender: FDA-Public Use
  Company Number: FR-BRISTOL-MYERS SQUIBB COMPANY-15863889

PATIENT
  Age: 59 Year
  Sex: Male

DRUGS (8)
  1. GLUCOPHAGE TABS [Suspect]
     Dosage: FORMULATION : 1G,TOTAL DOSE 3G, 3 DF,3 IN 1 DAY
     Route: 048
     Dates: end: 20101103
  2. BYETTA PEN DISPOSABLE [Suspect]
     Dosage: FORMULATION: 5MCG,ROUTE: PREFILLED PEN,1 DF;2 IN 1D
     Route: 058
     Dates: start: 20101028, end: 20101106
  3. DIAMICRON [Suspect]
     Dosage: 4 DF,1 IN 1 DAY,FORMULATION :30MG TAB
     Route: 048
     Dates: end: 20101103
  4. AMLOR [Concomitant]
     Dosage: CAP
     Route: 048
  5. CRESTOR [Concomitant]
     Dosage: TAB
     Route: 048
  6. PRETERAX [Concomitant]
     Dosage: 2MG TAB
     Route: 048
  7. GLIMEPIRIDE [Concomitant]
     Route: 048
     Dates: end: 20101026
  8. NOVOMIX [Concomitant]

REACTIONS (4)
  - Hepatic enzyme increased [Recovering/Resolving]
  - Pancreatitis acute [Recovered/Resolved]
  - Gastritis [Recovered/Resolved]
  - Off label use [Recovering/Resolving]
